FAERS Safety Report 26170074 (Version 1)
Quarter: 2025Q4

REPORT INFORMATION
  Report Type: Spontaneous
  Country: US (occurrence: US)
  Receive Date: 20251217
  Receipt Date: 20251217
  Transmission Date: 20260118
  Serious: Yes (Other)
  Sender: MALLINCKRODT
  Company Number: US-MALLINCKRODT-MNK202507966

PATIENT

DRUGS (10)
  1. NITRIC OXIDE [Suspect]
     Active Substance: NITRIC OXIDE
     Indication: Pulmonary hypertension
     Dosage: 20 PPM
     Route: 055
  2. NITRIC OXIDE [Suspect]
     Active Substance: NITRIC OXIDE
     Indication: Systolic dysfunction
  3. NITRIC OXIDE [Suspect]
     Active Substance: NITRIC OXIDE
     Indication: Hypertrophic cardiomyopathy
  4. DOBUTAMINE [Concomitant]
     Active Substance: DOBUTAMINE HYDROCHLORIDE
     Dosage: 5 MCG/KG/MIN
  5. DOBUTAMINE [Concomitant]
     Active Substance: DOBUTAMINE HYDROCHLORIDE
     Dosage: 15 MCG/KG/MIN
  6. DOBUTAMINE [Concomitant]
     Active Substance: DOBUTAMINE HYDROCHLORIDE
     Dosage: 5 MCG/KG/MIN
  7. VASOPRESSIN [Concomitant]
     Active Substance: VASOPRESSIN
     Dosage: 0.0015 UNIT/KG/MIN
  8. VASOPRESSIN [Concomitant]
     Active Substance: VASOPRESSIN
     Dosage: 0.0008 UNIT/KG/ MIN
  9. HYDROCORTISONE [Concomitant]
     Active Substance: HYDROCORTISONE
     Dosage: UNKNOWN
  10. SODIUM CHLORIDE [Concomitant]
     Active Substance: SODIUM CHLORIDE
     Dosage: 20 ML/ KG
     Route: 040

REACTIONS (8)
  - Pulmonary hypertension [Recovering/Resolving]
  - Patent ductus arteriosus [Recovering/Resolving]
  - Left ventricle outflow tract obstruction [Recovering/Resolving]
  - Ventricular dysfunction [Recovering/Resolving]
  - Tachycardia [Recovering/Resolving]
  - Left ventricular dysfunction [Recovering/Resolving]
  - Oxygen saturation decreased [Recovering/Resolving]
  - Hypotension [Recovering/Resolving]
